FAERS Safety Report 24557032 (Version 1)
Quarter: 2024Q4

REPORT INFORMATION
  Report Type: Spontaneous
  Country: NL (occurrence: NL)
  Receive Date: 20241028
  Receipt Date: 20241028
  Transmission Date: 20250115
  Serious: Yes (Other)
  Sender: AUROBINDO
  Company Number: NL-ABBVIE-5763050

PATIENT
  Age: 83 Year
  Sex: Male

DRUGS (9)
  1. RIVASTIGMINE [Suspect]
     Active Substance: RIVASTIGMINE
     Indication: Parkinson^s disease
     Dosage: UNK
     Route: 062
  2. CARBIDOPA\LEVODOPA [Suspect]
     Active Substance: CARBIDOPA\LEVODOPA
     Indication: Parkinson^s disease
     Dosage: LD: 0.00 ML, BIR: 0.54 ML/H, LIR: 0.27 ML/H, ED: 0.10 ML; GOES TO 24 HOURS, LAST ADMIN DATE: 05-2024
     Route: 058
     Dates: start: 20240513
  3. CARBIDOPA\LEVODOPA [Suspect]
     Active Substance: CARBIDOPA\LEVODOPA
     Dosage: ED:0.15 ML, REMAINS AT 24 HOURS
     Route: 058
     Dates: start: 202405, end: 202405
  4. CARBIDOPA\LEVODOPA [Suspect]
     Active Substance: CARBIDOPA\LEVODOPA
     Dosage: LD: 0.00 ML, BIR: 0.75 ML/H, HIR: 0.75 ML/H, LIR: 0.43 ML/H, ED: 0.20 ML
     Route: 058
     Dates: start: 20241001, end: 20241003
  5. CARBIDOPA\LEVODOPA [Suspect]
     Active Substance: CARBIDOPA\LEVODOPA
     Dosage: LD: 0.00 ML, BIR: 0.73 ML/H, HIR: 0.73 ML/H, LIR: 0.37 ML/H, ED: 0.20 ML; REMAINS AT 24 HOURS
     Route: 058
     Dates: start: 20240516, end: 20240521
  6. CARBIDOPA\LEVODOPA [Suspect]
     Active Substance: CARBIDOPA\LEVODOPA
     Dosage: LD: 0.00 ML, BIR: 0.75 ML/H, LIR: 0.39 ML/H, ED: 0.20 ML; REMAINS AT 24 HOURS
     Route: 058
     Dates: start: 20240603, end: 20240801
  7. CARBIDOPA\LEVODOPA [Suspect]
     Active Substance: CARBIDOPA\LEVODOPA
     Dosage: LD: 0.00 ML, BIR: 0.73 ML/H, HIR: 0.73 ML/H, LIR: 0.39 ML/H, ED: 0.20 ML; REMAINS AT 24 HOURS
     Route: 058
     Dates: start: 20240521, end: 20240603
  8. CARBIDOPA\LEVODOPA [Suspect]
     Active Substance: CARBIDOPA\LEVODOPA
     Dosage: LD: 0.00 ML, BIR: 0.75 ML/H, HIR: 0.75 ML/H, LIR: 0.43 ML/H, ED: 0.20 ML; REMAINS AT 24 HOURS
     Route: 058
     Dates: start: 20241003
  9. CARBIDOPA\LEVODOPA [Suspect]
     Active Substance: CARBIDOPA\LEVODOPA
     Dosage: LIR:0.41ML/H; REMAINS AT 24 HOURS
     Route: 058
     Dates: start: 20240801, end: 20241001

REACTIONS (27)
  - Hallucination [Recovering/Resolving]
  - Haematoma [Not Recovered/Not Resolved]
  - Somnolence [Recovering/Resolving]
  - Pruritus [Not Recovered/Not Resolved]
  - Confusional state [Recovering/Resolving]
  - Nocturia [Not Recovered/Not Resolved]
  - Skin irritation [Not Recovered/Not Resolved]
  - Catheter site haemorrhage [Not Recovered/Not Resolved]
  - Dyskinesia [Not Recovered/Not Resolved]
  - Mobility decreased [Recovering/Resolving]
  - Hyperphagia [Not Recovered/Not Resolved]
  - Visual impairment [Not Recovered/Not Resolved]
  - Memory impairment [Not Recovered/Not Resolved]
  - Weight decreased [Not Recovered/Not Resolved]
  - Skin discomfort [Not Recovered/Not Resolved]
  - Injection site haematoma [Not Recovered/Not Resolved]
  - Erythema [Not Recovered/Not Resolved]
  - Gait disturbance [Not Recovered/Not Resolved]
  - Freezing phenomenon [Not Recovered/Not Resolved]
  - On and off phenomenon [Not Recovered/Not Resolved]
  - Malabsorption from administration site [Unknown]
  - Unevaluable event [Not Recovered/Not Resolved]
  - Device placement issue [Not Recovered/Not Resolved]
  - Device difficult to use [Unknown]
  - Therapeutic product effect incomplete [Not Recovered/Not Resolved]
  - Product administered at inappropriate site [Unknown]
  - Off label use [Not Recovered/Not Resolved]

NARRATIVE: CASE EVENT DATE: 20240101
